FAERS Safety Report 9192966 (Version 1)
Quarter: 2013Q1

REPORT INFORMATION
  Report Type: Spontaneous
  Country: NO (occurrence: NO)
  Receive Date: 20130327
  Receipt Date: 20130327
  Transmission Date: 20140127
  Serious: Yes (Death, Other)
  Sender: FDA-Public Use
  Company Number: PHHY2013NO029185

PATIENT
  Age: 73 Year
  Sex: Female

DRUGS (3)
  1. FLUDARABINE [Suspect]
     Indication: CHRONIC LYMPHOCYTIC LEUKAEMIA
     Route: 051
     Dates: start: 201210
  2. CYCLOPHOSPHAMIDE [Suspect]
     Indication: CHRONIC LYMPHOCYTIC LEUKAEMIA
     Route: 051
     Dates: start: 201210
  3. RITUXIMAB [Suspect]
     Indication: CHRONIC LYMPHOCYTIC LEUKAEMIA
     Route: 051
     Dates: start: 201210

REACTIONS (3)
  - Subdural haemorrhage [Fatal]
  - Haemolysis [Unknown]
  - Thrombocytopenia [Unknown]
